FAERS Safety Report 8969485 (Version 1)
Quarter: 2012Q4

REPORT INFORMATION
  Report Type: 
  Country: US (occurrence: US)
  Receive Date: 20121218
  Receipt Date: 20121218
  Transmission Date: 20130627
  Serious: Yes (Hospitalization, Other)
  Sender: FDA-Public Use
  Company Number: US-BRISTOL-MYERS SQUIBB COMPANY-16257099

PATIENT
  Age: 39 Year
  Sex: Male

DRUGS (4)
  1. ABILIFY [Suspect]
     Indication: HALLUCINATION
     Dosage: doses changed from 20 mg to 15 mg and back to 20 mg
     Dates: start: 200507, end: 201111
  2. ALLOPURINOL [Concomitant]
  3. ZYPREXA [Concomitant]
     Dosage: 28Apr97-23Oct98
Jun99-Jul04
     Dates: start: 19970428, end: 200407
  4. SEROQUEL [Concomitant]
     Dates: start: 199905, end: 199905

REACTIONS (2)
  - Pneumonia aspiration [Unknown]
  - Dysphagia [Unknown]
